FAERS Safety Report 6360556-9 (Version None)
Quarter: 2009Q3

REPORT INFORMATION
  Report Type: 
  Country: None (occurrence: None)
  Receive Date: 20090917
  Receipt Date: 20090914
  Transmission Date: 20100115
  Serious: Yes (Other)
  Sender: FDA-Public Use
  Company Number: GB-JNJCH-2009024070

PATIENT
  Sex: Female

DRUGS (2)
  1. REGAINE 2% [Suspect]
     Indication: ALOPECIA
     Dosage: TEXT:UNSPECIFIED ONCE OR TWICE DAILY
     Route: 061
     Dates: start: 20090701, end: 20090731
  2. OMEPRAZOLE [Concomitant]
     Indication: DYSPEPSIA
     Dosage: TEXT:UNSPECIFIED
     Route: 065

REACTIONS (3)
  - EXPIRED DRUG ADMINISTERED [None]
  - PALPITATIONS [None]
  - PRODUCT QUALITY ISSUE [None]
